FAERS Safety Report 8553253-2 (Version None)
Quarter: 2012Q3

REPORT INFORMATION
  Report Type: 
  Country: None (occurrence: None)
  Receive Date: 20120731
  Receipt Date: 20120718
  Transmission Date: 20120928
  Serious: Yes (Other)
  Sender: FDA-Public Use
  Company Number: FR-VERTEX PHARMACEUTICALS INC.-000000000000001264

PATIENT
  Sex: Female

DRUGS (5)
  1. PEGASYS [Concomitant]
  2. INCIVO [Suspect]
     Indication: PRODUCT USED FOR UNKNOWN INDICATION
     Dosage: DOSAGE FORM: TABLET
     Route: 048
     Dates: start: 20120101, end: 20120404
  3. METFORMIN HCL [Concomitant]
  4. COPEGUS [Concomitant]
  5. PERINDOPRIL ERBUMINE [Concomitant]

REACTIONS (4)
  - ABSCESS [None]
  - PYREXIA [None]
  - RASH [None]
  - ASTHENIA [None]
